FAERS Safety Report 7259249-5 (Version None)
Quarter: 2011Q1

REPORT INFORMATION
  Report Type: 
  Country: None (occurrence: None)
  Receive Date: 20110129
  Receipt Date: 20100729
  Transmission Date: 20110831
  Serious: No
  Sender: FDA-Public Use
  Company Number: US-ABBOTT-10P-163-0660803-00

PATIENT
  Age: 58 Year
  Sex: Male

DRUGS (12)
  1. SINGULAIR [Concomitant]
     Indication: ASTHMA
  2. DEPAKOTE [Concomitant]
     Indication: ANXIETY
  3. ALLEGRA [Concomitant]
     Indication: HYPERSENSITIVITY
  4. ATARAX [Concomitant]
     Indication: INSOMNIA
  5. KLONOPIN [Concomitant]
     Indication: ANXIETY
  6. NEXIUM [Concomitant]
     Indication: PRODUCT USED FOR UNKNOWN INDICATION
  7. RELAFEN [Concomitant]
     Indication: PAIN
  8. ZOCOR [Concomitant]
     Indication: BLOOD CHOLESTEROL INCREASED
  9. ATARAX [Concomitant]
     Indication: PRURITUS
     Dosage: AT BED TIME
  10. HUMIRA [Suspect]
     Indication: PSORIASIS
     Dates: start: 20100726
  11. PAXIL [Concomitant]
     Indication: ANXIETY
  12. AMBIEN [Concomitant]
     Indication: PRODUCT USED FOR UNKNOWN INDICATION
     Dosage: AT BED TIME

REACTIONS (1)
  - INJECTION SITE HAEMATOMA [None]
